FAERS Safety Report 10035016 (Version 1)
Quarter: 2014Q1

REPORT INFORMATION
  Report Type: Spontaneous
  Country: US (occurrence: None)
  Receive Date: 20140306
  Receipt Date: 20140306
  Transmission Date: 20141002
  Serious: Yes (Hospitalization)
  Sender: FDA-Public Use
  Company Number: 163-21880-13062753

PATIENT
  Age: 74 Year
  Sex: Male
  Weight: 69 kg

DRUGS (3)
  1. REVLIMID (LENALIDOMIDE) (25 MILLIGRAM, CAPSULES) [Suspect]
     Indication: PLASMA CELL MYELOMA
     Dosage: 1 IN 1 D
     Route: 048
     Dates: start: 201107, end: 2011
  2. PREDNISONE (PREDNISON) [Concomitant]
  3. VELCADE (BORTEZOMIB) [Concomitant]

REACTIONS (1)
  - Plasma cell myeloma [None]
